FAERS Safety Report 6156098-6 (Version None)
Quarter: 2009Q2

REPORT INFORMATION
  Report Type: 
  Country: None (occurrence: None)
  Receive Date: 20090415
  Receipt Date: 20090409
  Transmission Date: 20091009
  Serious: Yes (Hospitalization)
  Sender: FDA-Public Use
  Company Number: HU-ABBOTT-09P-076-0567170-00

PATIENT
  Sex: Female
  Weight: 1.12 kg

DRUGS (2)
  1. SYNAGIS [Suspect]
     Indication: ANTIVIRAL PROPHYLAXIS
     Route: 030
     Dates: start: 20081215, end: 20081215
  2. SYNAGIS [Suspect]
     Route: 030
     Dates: start: 20090121, end: 20090121

REACTIONS (1)
  - INFECTION [None]
